FAERS Safety Report 18991211 (Version 1)
Quarter: 2021Q1

REPORT INFORMATION
  Report Type: Spontaneous
  Country: FR (occurrence: FR)
  Receive Date: 20210310
  Receipt Date: 20210310
  Transmission Date: 20210420
  Serious: Yes (Death, Other)
  Sender: FDA-Public Use
  Company Number: FR-ALKEM LABORATORIES LIMITED-FR-ALKEM-2021-01084

PATIENT
  Age: 1 Month
  Sex: Male

DRUGS (2)
  1. PREDNISONE. [Suspect]
     Active Substance: PREDNISONE
     Dosage: UNK
     Route: 064
  2. AZATHIOPRINE. [Suspect]
     Active Substance: AZATHIOPRINE
     Dosage: UNK
     Route: 064

REACTIONS (6)
  - Immunodeficiency congenital [Unknown]
  - Congenital lymphoedema [Unknown]
  - Pancytopenia [Unknown]
  - Infection [Fatal]
  - Myelosuppression [Unknown]
  - Foetal exposure during pregnancy [Unknown]
